FAERS Safety Report 11031834 (Version 1)
Quarter: 2015Q2

REPORT INFORMATION
  Report Type: Spontaneous
  Country: CA (occurrence: CA)
  Receive Date: 20150415
  Receipt Date: 20150415
  Transmission Date: 20150821
  Serious: Yes (Other)
  Sender: FDA-Public Use
  Company Number: CA-TEVA-555152USA

PATIENT
  Age: 30 Year
  Sex: Female
  Weight: 52.21 kg

DRUGS (1)
  1. PLAN B [Suspect]
     Active Substance: LEVONORGESTREL
     Indication: POST COITAL CONTRACEPTION
     Dates: start: 20150407, end: 20150407

REACTIONS (4)
  - Haemorrhage [Unknown]
  - Menstruation irregular [Unknown]
  - Unevaluable event [Unknown]
  - Dysmenorrhoea [Unknown]

NARRATIVE: CASE EVENT DATE: 20150413
